FAERS Safety Report 25863271 (Version 1)
Quarter: 2025Q3

REPORT INFORMATION
  Report Type: Spontaneous
  Country: EU (occurrence: EU)
  Receive Date: 20250930
  Receipt Date: 20250930
  Transmission Date: 20251021
  Serious: Yes (Other)
  Sender: UCB
  Company Number: None

PATIENT
  Age: 66 Year
  Sex: Female

DRUGS (6)
  1. KEPPRA [Suspect]
     Active Substance: LEVETIRACETAM
     Indication: Epilepsy
     Dosage: 500 MILLIGRAM, 2X/DAY (BID)
     Route: 042
     Dates: start: 20250814, end: 20250821
  2. KEPPRA [Suspect]
     Active Substance: LEVETIRACETAM
     Dosage: 750 MILLIGRAM, 2X/DAY (BID)
     Route: 042
     Dates: start: 20250822, end: 20250827
  3. KEPPRA [Suspect]
     Active Substance: LEVETIRACETAM
     Dosage: 500 MILLIGRAM, 2X/DAY (BID)
     Route: 042
     Dates: start: 20250829, end: 20250831
  4. KEPPRA [Suspect]
     Active Substance: LEVETIRACETAM
     Dosage: 250 MILLIGRAM, ONCE DAILY (QD)
     Route: 042
     Dates: start: 20250902, end: 20250902
  5. RIVOTRIL [Suspect]
     Active Substance: CLONAZEPAM
     Indication: Epilepsy
     Dosage: 1 MILLIGRAM, 2X/DAY (BID)
     Route: 042
     Dates: start: 20250827, end: 20250828
  6. ZOVIRAX [Suspect]
     Active Substance: ACYCLOVIR
     Indication: Prophylaxis
     Dosage: 1200 MILLIGRAM, ONCE DAILY (QD)
     Route: 042
     Dates: start: 20250829, end: 20250902

REACTIONS (3)
  - Thrombocytopenia [Recovered/Resolved]
  - Underdose [Unknown]
  - Off label use [Unknown]

NARRATIVE: CASE EVENT DATE: 20250829
